FAERS Safety Report 5676642-2 (Version None)
Quarter: 2008Q1

REPORT INFORMATION
  Report Type: 
  Country: None (occurrence: None)
  Receive Date: 20080324
  Receipt Date: 20080319
  Transmission Date: 20080703
  Serious: Yes (Death, Congenital Anomaly, Other)
  Sender: FDA-Public Use
  Company Number: BE-BAYER-200813818GPV

PATIENT
  Age: 0 Hour
  Sex: Female
  Weight: 1.64 kg

DRUGS (1)
  1. MIRENA [Suspect]
     Route: 064
     Dates: end: 20040101

REACTIONS (2)
  - CONGENITAL ANOMALY [None]
  - PREMATURE BABY [None]
